FAERS Safety Report 6760456-6 (Version None)
Quarter: 2010Q2

REPORT INFORMATION
  Report Type: 
  Country: None (occurrence: None)
  Receive Date: 20100608
  Receipt Date: 20100528
  Transmission Date: 20101027
  Serious: Yes (Death, Other)
  Sender: FDA-Public Use
  Company Number: PHHY2010US32643

PATIENT
  Sex: Female
  Weight: 45.71 kg

DRUGS (7)
  1. EXJADE [Suspect]
     Indication: MYELODYSPLASTIC SYNDROME
     Dosage: 750 MG/DAY
     Route: 048
     Dates: start: 20090929, end: 20100416
  2. DECITABINE [Concomitant]
     Indication: MYELODYSPLASTIC SYNDROME
     Dosage: 20 MG (5 DAYS) FOR 28 DAYS
     Route: 042
     Dates: end: 20100426
  3. DECITABINE [Concomitant]
     Indication: ANAEMIA
  4. PROCRIT [Concomitant]
     Indication: MYELODYSPLASTIC SYNDROME
     Dosage: 60000 UNITS WEEKLY
     Route: 058
     Dates: start: 20071101, end: 20100426
  5. PROCRIT [Concomitant]
     Indication: ANAEMIA
  6. NEUPOGEN [Concomitant]
     Indication: MYELODYSPLASTIC SYNDROME
     Dosage: 150 UG 3/WEEKLY
     Route: 058
     Dates: start: 20090120, end: 20100426
  7. NEUPOGEN [Concomitant]
     Indication: ANAEMIA

REACTIONS (4)
  - CARDIO-RESPIRATORY ARREST [None]
  - SEPSIS [None]
  - THROMBOEMBOLECTOMY [None]
  - THROMBOSIS [None]
